FAERS Safety Report 12991502 (Version 1)
Quarter: 2016Q4

REPORT INFORMATION
  Report Type: Spontaneous
  Country: DE (occurrence: DE)
  Receive Date: 20161201
  Receipt Date: 20161201
  Transmission Date: 20170207
  Serious: Yes (Other)
  Sender: FDA-Public Use
  Company Number: DE-PFIZER INC-2016548843

PATIENT
  Age: 27 Year
  Sex: Male

DRUGS (2)
  1. THIAMIN [Concomitant]
     Active Substance: THIAMINE
     Dosage: 100 MG, DAILY
     Route: 048
     Dates: start: 20151215, end: 20151227
  2. VENLAFAXINE HCL [Suspect]
     Active Substance: VENLAFAXINE HYDROCHLORIDE
     Dosage: 37.5 MG, DAILY
     Route: 048
     Dates: start: 20151216

REACTIONS (4)
  - Dizziness [Unknown]
  - Hyperhidrosis [Unknown]
  - Restlessness [Unknown]
  - Anxiety [Recovered/Resolved]

NARRATIVE: CASE EVENT DATE: 20151217
